FAERS Safety Report 7639462-5 (Version None)
Quarter: 2011Q3

REPORT INFORMATION
  Report Type: 
  Country: None (occurrence: None)
  Receive Date: 20110727
  Receipt Date: 20110722
  Transmission Date: 20111222
  Serious: Yes (Life-Threatening, Hospitalization, Other)
  Sender: FDA-Public Use
  Company Number: US-GLAXOSMITHKLINE-A0931474A

PATIENT
  Age: 71 Year
  Sex: Female
  Weight: 106.8 kg

DRUGS (4)
  1. COUMADIN [Concomitant]
     Dosage: 5MG PER DAY
     Route: 048
  2. DOXEPIN [Concomitant]
     Dosage: 100MG AT NIGHT
     Route: 048
  3. VOTRIENT [Suspect]
     Indication: RENAL CELL CARCINOMA
     Dosage: 800MG PER DAY
     Route: 048
     Dates: start: 20110601
  4. ACTOS [Concomitant]
     Dosage: 30MG PER DAY
     Route: 048

REACTIONS (6)
  - CONFUSIONAL STATE [None]
  - RENAL FAILURE [None]
  - THROMBOTIC THROMBOCYTOPENIC PURPURA [None]
  - DISORIENTATION [None]
  - PYREXIA [None]
  - THROMBOCYTOPENIA [None]
